FAERS Safety Report 5340946-3 (Version None)
Quarter: 2007Q2

REPORT INFORMATION
  Report Type: 
  Country: None (occurrence: None)
  Receive Date: 20070405
  Receipt Date: 20070117
  Transmission Date: 20071010
  Serious: No
  Sender: FDA-Public Use
  Company Number: US200701004035

PATIENT
  Sex: Female

DRUGS (3)
  1. CYMBALTA [Suspect]
     Dosage: SEE IMAGE
     Dates: start: 20070101, end: 20070101
  2. CYMBALTA [Suspect]
     Dosage: SEE IMAGE
     Dates: end: 20070101
  3. CYMBALTA [Suspect]
     Dosage: SEE IMAGE
     Dates: start: 20070101

REACTIONS (4)
  - DRUG INEFFECTIVE [None]
  - MALAISE [None]
  - MICTURITION DISORDER [None]
  - MIDDLE INSOMNIA [None]
